FAERS Safety Report 15602818 (Version 1)
Quarter: 2018Q4

REPORT INFORMATION
  Report Type: Spontaneous
  Country: SE (occurrence: SE)
  Receive Date: 20181109
  Receipt Date: 20181109
  Transmission Date: 20190205
  Serious: Yes (Life-Threatening, Hospitalization, Other)
  Sender: FDA-Public Use
  Company Number: SE-PFIZER INC-2018251283

PATIENT
  Age: 16 Month
  Sex: Male

DRUGS (8)
  1. VINCRISTINE SULFATE. [Suspect]
     Active Substance: VINCRISTINE SULFATE
     Indication: NEUROBLASTOMA
     Dosage: A COURSE, DAY 0
  2. VINCRISTINE SULFATE. [Suspect]
     Active Substance: VINCRISTINE SULFATE
     Dosage: PARTIAL C COURSE, DAY 20
  3. ETOPOSIDE. [Suspect]
     Active Substance: ETOPOSIDE
     Indication: NEUROBLASTOMA
     Dosage: A COURSE, DAY 0
  4. ETOPOSIDE. [Suspect]
     Active Substance: ETOPOSIDE
     Dosage: PARTIAL C COURSE, DAY 20
  5. CYCLOPHOSPHAMIDE. [Suspect]
     Active Substance: CYCLOPHOSPHAMIDE
     Indication: NEUROBLASTOMA
     Dosage: PARTIAL C COURSE, DAY 20
  6. CISPLATIN. [Suspect]
     Active Substance: CISPLATIN
     Indication: NEUROBLASTOMA
     Dosage: ONE B COURSE, DAY 10
  7. VINCRISTINE SULFATE. [Suspect]
     Active Substance: VINCRISTINE SULFATE
     Dosage: ONE B COURSE, DAY 10
  8. CARBOPLATIN. [Suspect]
     Active Substance: CARBOPLATIN
     Indication: NEUROBLASTOMA
     Dosage: A COURSE, DAY 0

REACTIONS (9)
  - Thrombocytopenia [Unknown]
  - Respiratory failure [Unknown]
  - Toxicity to various agents [Unknown]
  - Anaemia [Unknown]
  - Bone marrow toxicity [Unknown]
  - Intestinal haemorrhage [Unknown]
  - Sepsis [Unknown]
  - Neutropenia [Unknown]
  - Colitis [Unknown]
